FAERS Safety Report 22349801 (Version 1)
Quarter: 2023Q2

REPORT INFORMATION
  Report Type: Spontaneous
  Country: DE (occurrence: DE)
  Receive Date: 20230522
  Receipt Date: 20230522
  Transmission Date: 20230722
  Serious: Yes (Hospitalization)
  Sender: FDA-Public Use
  Company Number: None

PATIENT
  Age: 39 Year
  Sex: Male
  Weight: 100 kg

DRUGS (1)
  1. IMRALDI [Suspect]
     Active Substance: ADALIMUMAB
     Indication: Crohn^s disease
     Dosage: 40MG
     Route: 058
     Dates: start: 2022

REACTIONS (4)
  - Dysphagia [Not Recovered/Not Resolved]
  - Facial paralysis [Not Recovered/Not Resolved]
  - Guillain-Barre syndrome [Not Recovered/Not Resolved]
  - Quadriparesis [Not Recovered/Not Resolved]

NARRATIVE: CASE EVENT DATE: 20230405
